FAERS Safety Report 11291935 (Version 2)
Quarter: 2015Q4

REPORT INFORMATION
  Report Type: Spontaneous
  Country: US (occurrence: US)
  Receive Date: 20150722
  Receipt Date: 20151016
  Transmission Date: 20160304
  Serious: Yes (Hospitalization)
  Sender: FDA-Public Use
  Company Number: US-DSJP-DSU-2015-122398

PATIENT

DRUGS (6)
  1. BENICAR HCT [Suspect]
     Active Substance: HYDROCHLOROTHIAZIDE\OLMESARTAN MEDOXOMIL
     Indication: OEDEMA
  2. DILTIAZEM [Concomitant]
     Active Substance: DILTIAZEM
     Indication: BLOOD PRESSURE MEASUREMENT
     Dosage: 420 MG, UNK
  3. ZANTAC [Concomitant]
     Active Substance: RANITIDINE HYDROCHLORIDE
     Indication: DYSPEPSIA
     Dosage: UNK
     Dates: start: 2013
  4. BENICAR [Suspect]
     Active Substance: OLMESARTAN MEDOXOMIL
     Indication: PRODUCT USED FOR UNKNOWN INDICATION
     Dosage: UNK
     Dates: start: 201001
  5. BENICAR HCT [Suspect]
     Active Substance: HYDROCHLOROTHIAZIDE\OLMESARTAN MEDOXOMIL
     Indication: HYPERTENSION
     Dosage: 40-12.5MG ONCE DAILY
     Dates: start: 20100601, end: 20120118
  6. BENAZEPRIL HCT [Concomitant]
     Indication: BLOOD PRESSURE MEASUREMENT
     Dosage: UNK

REACTIONS (7)
  - Decreased appetite [Unknown]
  - Malnutrition [Unknown]
  - Dehydration [Unknown]
  - Malabsorption [Unknown]
  - Renal disorder [Unknown]
  - Abdominal pain [Unknown]
  - Diverticulitis [Unknown]

NARRATIVE: CASE EVENT DATE: 2012
